FAERS Safety Report 21526711 (Version 2)
Quarter: 2022Q4

REPORT INFORMATION
  Report Type: Spontaneous
  Country: JP (occurrence: JP)
  Receive Date: 20221031
  Receipt Date: 20221219
  Transmission Date: 20230113
  Serious: Yes (Other)
  Sender: FDA-Public Use
  Company Number: JP-TAKEDA-2022TJP076310

PATIENT
  Age: 42 Year
  Sex: Male
  Weight: 60 kg

DRUGS (7)
  1. ENTYVIO [Suspect]
     Active Substance: VEDOLIZUMAB
     Indication: Colitis ulcerative
     Dosage: 300 MILLIGRAM
     Route: 041
     Dates: start: 20220825, end: 20221004
  2. PREDONINE [Concomitant]
     Active Substance: PREDNISOLONE
     Dosage: UNK, QD
     Route: 065
  3. PROGRAF [Concomitant]
     Active Substance: TACROLIMUS
     Dosage: UNK, BID
     Route: 065
     Dates: start: 20220805
  4. MIYA-BM [Concomitant]
     Active Substance: CLOSTRIDIUM BUTYRICUM SPORES STRAIN M-55
     Dosage: UNK UNK, BID
     Route: 065
     Dates: start: 20220805
  5. RABEPRAZOLE SODIUM [Concomitant]
     Active Substance: RABEPRAZOLE SODIUM
     Dosage: 10 MILLIGRAM, QD
     Route: 065
     Dates: start: 20220805
  6. PENTASA [Concomitant]
     Active Substance: MESALAMINE
     Dosage: 4 GRAM, BID
     Route: 065
     Dates: start: 20220730
  7. CALONAL [Concomitant]
     Active Substance: ACETAMINOPHEN
     Dosage: UNK
     Route: 065

REACTIONS (1)
  - Colitis ulcerative [Not Recovered/Not Resolved]

NARRATIVE: CASE EVENT DATE: 20220901
